FAERS Safety Report 20910837 (Version 1)
Quarter: 2022Q2

REPORT INFORMATION
  Report Type: Spontaneous
  Country: CN (occurrence: None)
  Receive Date: 20220603
  Receipt Date: 20220603
  Transmission Date: 20220721
  Serious: Yes (Other)
  Sender: FDA-Public Use
  Company Number: CN-Eisai Medical Research-EC-2022-115814

PATIENT
  Age: 46 Year
  Sex: Female
  Weight: 50 kg

DRUGS (2)
  1. HALAVEN [Suspect]
     Active Substance: ERIBULIN MESYLATE
     Indication: Breast cancer
     Route: 042
     Dates: start: 20220429, end: 20220506
  2. CATEQUENTINIB DIHYDROCHLORIDE [Suspect]
     Active Substance: CATEQUENTINIB DIHYDROCHLORIDE
     Indication: Breast cancer
     Route: 048
     Dates: start: 20220429, end: 20220506

REACTIONS (1)
  - Mouth ulceration [Recovering/Resolving]

NARRATIVE: CASE EVENT DATE: 20220512
